FAERS Safety Report 16829616 (Version 4)
Quarter: 2019Q4

REPORT INFORMATION
  Report Type: Spontaneous
  Country: JP (occurrence: JP)
  Receive Date: 20190919
  Receipt Date: 20191224
  Transmission Date: 20200122
  Serious: Yes (Other)
  Sender: FDA-Public Use
  Company Number: JP-BRISTOL-MYERS SQUIBB COMPANY-BMS-2019-090821

PATIENT
  Age: 80 Year
  Sex: Male

DRUGS (7)
  1. PREDONINE [PREDNISOLONE ACETATE] [Suspect]
     Active Substance: PREDNISOLONE ACETATE
     Indication: PRODUCT USED FOR UNKNOWN INDICATION
     Dosage: 50 MILLIGRAM, QD
     Route: 048
     Dates: start: 20190729
  2. OPDIVO [Suspect]
     Active Substance: NIVOLUMAB
     Indication: METASTATIC RENAL CELL CARCINOMA
     Dosage: 240 MILLIGRAM, Q3WK
     Route: 041
     Dates: start: 20190611, end: 20190702
  3. YERVOY [Suspect]
     Active Substance: IPILIMUMAB
     Indication: METASTATIC RENAL CELL CARCINOMA
     Dosage: 1 MILLIGRAM/KILOGRAM, Q3WK
     Route: 041
     Dates: start: 20190611, end: 20190702
  4. PREDONINE [PREDNISOLONE ACETATE] [Suspect]
     Active Substance: PREDNISOLONE ACETATE
     Indication: RASH PRURITIC
     Dosage: 60 MILLIGRAM, QD
     Route: 048
     Dates: start: 201907, end: 20190728
  5. PREDONINE [PREDNISOLONE ACETATE] [Suspect]
     Active Substance: PREDNISOLONE ACETATE
     Indication: PRODUCT USED FOR UNKNOWN INDICATION
     Dosage: 20 MILLIGRAM, QD
     Route: 048
     Dates: start: 201909
  6. PREDONINE [PREDNISOLONE ACETATE] [Suspect]
     Active Substance: PREDNISOLONE ACETATE
     Indication: PRODUCT USED FOR UNKNOWN INDICATION
     Dosage: 10 MILLIGRAM, QD
     Route: 048
     Dates: start: 2019
  7. RINDERON [BETAMETHASONE SODIUM PHOSPHATE] [Suspect]
     Active Substance: BETAMETHASONE SODIUM PHOSPHATE
     Indication: PRODUCT USED FOR UNKNOWN INDICATION
     Dosage: 2 MILLIGRAM, QD
     Route: 048
     Dates: start: 2019

REACTIONS (8)
  - Spinal compression fracture [Unknown]
  - Hypopituitarism [Unknown]
  - Fall [Unknown]
  - Malaise [Recovering/Resolving]
  - Adrenal insufficiency [Recovering/Resolving]
  - Rash pruritic [Recovering/Resolving]
  - Pruritus [Recovering/Resolving]
  - Pyrexia [Recovering/Resolving]

NARRATIVE: CASE EVENT DATE: 201907
